FAERS Safety Report 16144508 (Version 1)
Quarter: 2019Q1

REPORT INFORMATION
  Report Type: Spontaneous
  Country: US (occurrence: US)
  Receive Date: 20190227
  Receipt Date: 20190227
  Transmission Date: 20190418
  Serious: Yes (Hospitalization)
  Sender: FDA-Public Use
  Company Number: None

PATIENT
  Age: 36 Year
  Sex: Female
  Weight: 107.95 kg

DRUGS (2)
  1. TOPROL XL [Suspect]
     Active Substance: METOPROLOL SUCCINATE
     Indication: ESSENTIAL HYPERTENSION
  2. TOPROL XL [Suspect]
     Active Substance: METOPROLOL SUCCINATE
     Indication: ARTERIOSCLEROSIS
     Route: 048

REACTIONS (5)
  - Fluid retention [None]
  - Atrial fibrillation [None]
  - Polyp [None]
  - Blood pressure decreased [None]
  - Exposure during pregnancy [None]

NARRATIVE: CASE EVENT DATE: 20150221
